FAERS Safety Report 10846802 (Version 2)
Quarter: 2015Q2

REPORT INFORMATION
  Report Type: Report from Study
  Country: CO (occurrence: CO)
  Receive Date: 20150220
  Receipt Date: 20150410
  Transmission Date: 20150821
  Serious: Yes (Hospitalization, Other)
  Sender: FDA-Public Use
  Company Number: CO-BAYER-2015-022205

PATIENT
  Age: 40 Year
  Sex: Female

DRUGS (2)
  1. CARBAMAZEPINE. [Concomitant]
     Active Substance: CARBAMAZEPINE
  2. BETAFERON [Suspect]
     Active Substance: INTERFERON BETA-1B
     Indication: MULTIPLE SCLEROSIS
     Dosage: 250 ?G/ML, QOD
     Route: 058
     Dates: start: 20150209

REACTIONS (9)
  - Hypoaesthesia [None]
  - Feeling hot [Not Recovered/Not Resolved]
  - Injection site pruritus [None]
  - Insomnia [Not Recovered/Not Resolved]
  - Thrombosis [Not Recovered/Not Resolved]
  - Injection site erythema [None]
  - Pain in extremity [Not Recovered/Not Resolved]
  - Off label use [None]
  - Pain in extremity [None]

NARRATIVE: CASE EVENT DATE: 20150209
